FAERS Safety Report 8544807-8 (Version None)
Quarter: 2012Q3

REPORT INFORMATION
  Report Type: 
  Country: None (occurrence: None)
  Receive Date: 20120717
  Receipt Date: 20120703
  Transmission Date: 20120928
  Serious: Yes (Other)
  Sender: FDA-Public Use
  Company Number: 2012SA039992

PATIENT
  Age: 72 Year
  Sex: Female

DRUGS (1)
  1. ASPERCREME MAX NO-MESS ROLL-ON [Suspect]
     Indication: PAIN IN EXTREMITY
     Dates: start: 20120501, end: 20120601

REACTIONS (2)
  - HERPES ZOSTER [None]
  - SLEEP DISORDER [None]
